FAERS Safety Report 8417567-9 (Version None)
Quarter: 2012Q2

REPORT INFORMATION
  Report Type: 
  Country: None (occurrence: None)
  Receive Date: 20120606
  Receipt Date: 20120604
  Transmission Date: 20120825
  Serious: Yes (Hospitalization)
  Sender: FDA-Public Use
  Company Number: CA-AMGEN-CANSP2012024121

PATIENT
  Age: 68 Year
  Sex: Female

DRUGS (9)
  1. ENBREL [Suspect]
     Indication: PSORIASIS
     Dosage: 50 MG, QWK
     Dates: start: 20110314
  2. VITAMIN D [Concomitant]
     Dosage: UNK UNK, QD
  3. OMEPRAZOLE [Concomitant]
     Dosage: 20 MG, QD
  4. BISOPROLOL FUMARATE [Concomitant]
     Dosage: 5 MG, QD
  5. FUROSEMIDE [Concomitant]
     Dosage: 20 MG, QD
  6. ASPIRIN [Concomitant]
     Dosage: 80 MG, QD
  7. ATACAND [Concomitant]
     Dosage: 16 MG, QD
  8. MORPHINE [Concomitant]
     Dosage: 5 MG, UNK
  9. AMLODIPINE [Concomitant]
     Dosage: 5 MG, QD

REACTIONS (8)
  - MUSCLE SPASMS [None]
  - NAUSEA [None]
  - URINARY TRACT INFECTION [None]
  - RENAL FAILURE [None]
  - GASTROINTESTINAL DISORDER [None]
  - ANAEMIA [None]
  - DEHYDRATION [None]
  - VOMITING [None]
